FAERS Safety Report 15812709 (Version 2)
Quarter: 2019Q1

REPORT INFORMATION
  Report Type: Report from Study
  Country: ZA (occurrence: ZA)
  Receive Date: 20190111
  Receipt Date: 20190121
  Transmission Date: 20190417
  Serious: Yes (Hospitalization)
  Sender: FDA-Public Use
  Company Number: ZA-SA-2018SA244700

PATIENT
  Age: 59 Year
  Sex: Female

DRUGS (8)
  1. AUSTELL AMLODIPINE [Concomitant]
     Dosage: AFTER BREAKFAST- 5 MG, QD
     Dates: start: 20180807
  2. STORWIN [Concomitant]
     Active Substance: ROSUVASTATIN CALCIUM
     Dosage: AFTER SUPPER- 20 MG, QD
     Dates: start: 20180807
  3. ECOTRIN [Concomitant]
     Active Substance: ASPIRIN
     Dosage: AFTER BREAKFAST- 81 MG, QD
     Dates: start: 20180807
  4. BIGSENS [Concomitant]
     Active Substance: METFORMIN HYDROCHLORIDE
     Dosage: AFTER SUPPER-1000 MG, AFTER BREAKFAST- 1000 MG, BID
     Dates: start: 19900807
  5. NO STUDY DRUG GIVEN [Suspect]
     Active Substance: UNSPECIFIED INGREDIENT
  6. DYNARB [Concomitant]
     Dosage: AFTER BREAKFAST- 300 MG, QD
     Dates: start: 20180807
  7. OPTISULIN (INSULIN GLARGINE) [Suspect]
     Active Substance: INSULIN GLARGINE
     Indication: TYPE 2 DIABETES MELLITUS
     Dosage: 10 U, HS
     Dates: start: 20180807
  8. DIAGLUCIDE [Concomitant]
     Active Substance: GLICLAZIDE
     Dosage: BEFORE SUPPER- 60 MG, BEFORE BREAKFAST- 60 MG, BID
     Dates: start: 20180807

REACTIONS (11)
  - Gastroenteritis [Unknown]
  - Cough [Not Recovered/Not Resolved]
  - Pharyngitis [Not Recovered/Not Resolved]
  - Hyperglycaemia [Not Recovered/Not Resolved]
  - Dehydration [Recovered/Resolved]
  - Cystitis [Recovered/Resolved]
  - Iron deficiency [Unknown]
  - Hypoglycaemia [Recovered/Resolved]
  - Glycosylated haemoglobin increased [Unknown]
  - Blood glucose decreased [Unknown]
  - Product dose omission [Unknown]

NARRATIVE: CASE EVENT DATE: 20180807
